FAERS Safety Report 6291872-7 (Version None)
Quarter: 2009Q3

REPORT INFORMATION
  Report Type: 
  Country: None (occurrence: None)
  Receive Date: 20090729
  Receipt Date: 20090713
  Transmission Date: 20100115
  Serious: Yes (Other)
  Sender: FDA-Public Use
  Company Number: MC200900252

PATIENT
  Sex: Female

DRUGS (1)
  1. CLEVIPREX [Suspect]
     Indication: BLOOD PRESSURE MANAGEMENT
     Dosage: INTRAVENOUS
     Route: 042
     Dates: start: 20090709, end: 20090709

REACTIONS (3)
  - FOOD ALLERGY [None]
  - PYREXIA [None]
  - URTICARIA [None]
